FAERS Safety Report 13038000 (Version 2)
Quarter: 2016Q4

REPORT INFORMATION
  Report Type: Report from Study
  Country: JP (occurrence: JP)
  Receive Date: 20161218
  Receipt Date: 20161229
  Transmission Date: 20170207
  Serious: Yes (Death, Other)
  Sender: FDA-Public Use
  Company Number: JP-REGENERON PHARMACEUTICALS, INC.-2016-25163

PATIENT

DRUGS (35)
  1. EYLEA [Suspect]
     Active Substance: AFLIBERCEPT
     Dosage: 2 MG (OD), ONCE
     Route: 031
     Dates: start: 20150610, end: 20150610
  2. EYLEA [Suspect]
     Active Substance: AFLIBERCEPT
     Dosage: 2 MG (OS), ONCE
     Route: 031
     Dates: start: 20151202, end: 20151202
  3. EYLEA [Suspect]
     Active Substance: AFLIBERCEPT
     Dosage: 2 MG (OS), ONCE
     Route: 031
     Dates: start: 20160615, end: 20160615
  4. PRORANON [Concomitant]
     Indication: PRODUCT USED FOR UNKNOWN INDICATION
     Dosage: UNK
     Route: 047
  5. CRAVIT [Concomitant]
     Active Substance: LEVOFLOXACIN
     Indication: INFECTION PROPHYLAXIS
     Dosage: DAILY DOSE 4 GTT
     Route: 047
     Dates: start: 20130529
  6. EYLEA [Suspect]
     Active Substance: AFLIBERCEPT
     Dosage: 2 MG (OS), ONCE
     Route: 031
     Dates: start: 20140723, end: 20140723
  7. EYLEA [Suspect]
     Active Substance: AFLIBERCEPT
     Dosage: 2 MG (OS), ONCE
     Route: 031
     Dates: start: 20140827, end: 20140827
  8. EYLEA [Suspect]
     Active Substance: AFLIBERCEPT
     Dosage: 2 MG (OS), ONCE
     Route: 031
     Dates: start: 20141029, end: 20141029
  9. EYLEA [Suspect]
     Active Substance: AFLIBERCEPT
     Dosage: 2 MG (OD), ONCE
     Route: 031
     Dates: start: 20151118, end: 20151118
  10. EYLEA [Suspect]
     Active Substance: AFLIBERCEPT
     Dosage: 2 MG, ONCE, TOTAL OF 28 INJECTIONS
     Route: 031
     Dates: start: 20161208, end: 20161208
  11. EYLEA [Suspect]
     Active Substance: AFLIBERCEPT
     Indication: NEOVASCULAR AGE-RELATED MACULAR DEGENERATION
     Dosage: 2 MG (OS), ONCE
     Route: 031
     Dates: start: 20130529, end: 20130529
  12. EYLEA [Suspect]
     Active Substance: AFLIBERCEPT
     Dosage: 2 MG (OS), ONCE
     Route: 031
     Dates: start: 20140625, end: 20140625
  13. EYLEA [Suspect]
     Active Substance: AFLIBERCEPT
     Dosage: 2 MG (OD), ONCE
     Route: 031
     Dates: start: 20141119, end: 20141119
  14. EYLEA [Suspect]
     Active Substance: AFLIBERCEPT
     Dosage: 2 MG (OS), ONCE
     Route: 031
     Dates: start: 20150708, end: 20150708
  15. EYLEA [Suspect]
     Active Substance: AFLIBERCEPT
     Dosage: 2 MG (OS), ONCE
     Route: 031
     Dates: start: 20150930, end: 20150930
  16. EYLEA [Suspect]
     Active Substance: AFLIBERCEPT
     Dosage: 2 MG (OS), ONCE
     Route: 031
     Dates: start: 20160217, end: 20160217
  17. BENOXIL [Concomitant]
     Active Substance: BENOXINATE HYDROCHLORIDE
     Indication: ANAESTHESIA PROCEDURE
     Dosage: DAILY DOSE 1 GTT
     Route: 047
     Dates: start: 20130529
  18. EYLEA [Suspect]
     Active Substance: AFLIBERCEPT
     Dosage: 2 MG (OS), ONCE
     Route: 031
     Dates: start: 20140423, end: 20140423
  19. EYLEA [Suspect]
     Active Substance: AFLIBERCEPT
     Dosage: 2 MG (OS), ONCE
     Route: 031
     Dates: start: 20140521, end: 20140521
  20. EYLEA [Suspect]
     Active Substance: AFLIBERCEPT
     Dosage: 2 MG (OD), ONCE
     Route: 031
     Dates: start: 20150819, end: 20150819
  21. FLOMOX                             /01418603/ [Concomitant]
     Active Substance: CEFCAPENE PIVOXIL HYDROCHLORIDE HYDRATE
     Indication: INFECTION PROPHYLAXIS
     Dosage: UNK
  22. BESTRON [Concomitant]
     Indication: INFECTION PROPHYLAXIS
     Dosage: UNK
     Route: 047
  23. ISODINE [Concomitant]
     Active Substance: POVIDONE-IODINE
     Indication: INFECTION PROPHYLAXIS
     Dosage: DAILY DOSE 20 ML
     Route: 047
     Dates: start: 20130529
  24. APPAMIDE PLUS [Concomitant]
     Indication: MYDRIASIS
     Dosage: DAILY DOSE 4 GTT
     Route: 047
     Dates: start: 20130529
  25. EYLEA [Suspect]
     Active Substance: AFLIBERCEPT
     Dosage: 2 MG (OD), ONCE
     Route: 031
     Dates: start: 20150114, end: 20150114
  26. EYLEA [Suspect]
     Active Substance: AFLIBERCEPT
     Dosage: 2 MG (OD), ONCE
     Route: 031
     Dates: start: 20150318, end: 20150318
  27. EYLEA [Suspect]
     Active Substance: AFLIBERCEPT
     Dosage: 2 MG (OD), ONCE
     Route: 031
     Dates: start: 20160120, end: 20160120
  28. EYLEA [Suspect]
     Active Substance: AFLIBERCEPT
     Dosage: 2 MG (OD), ONCE
     Route: 031
     Dates: start: 20160420, end: 20160420
  29. EYLEA [Suspect]
     Active Substance: AFLIBERCEPT
     Dosage: 2 MG (OS), ONCE
     Route: 031
     Dates: start: 20130626, end: 20130626
  30. EYLEA [Suspect]
     Active Substance: AFLIBERCEPT
     Dosage: 2 MG (OS), ONCE
     Route: 031
     Dates: start: 20130724, end: 20130724
  31. EYLEA [Suspect]
     Active Substance: AFLIBERCEPT
     Dosage: 2 MG (OS), ONCE
     Route: 031
     Dates: start: 20150204, end: 20150204
  32. EYLEA [Suspect]
     Active Substance: AFLIBERCEPT
     Dosage: 2 MG (OS), ONCE
     Route: 031
     Dates: start: 20131113, end: 20131113
  33. EYLEA [Suspect]
     Active Substance: AFLIBERCEPT
     Dosage: 2 MG (OS), ONCE
     Route: 031
     Dates: start: 20131211, end: 20131211
  34. EYLEA [Suspect]
     Active Substance: AFLIBERCEPT
     Dosage: 2 MG (OS), ONCE
     Route: 031
     Dates: start: 20141203, end: 20141203
  35. EYLEA [Suspect]
     Active Substance: AFLIBERCEPT
     Dosage: 2 MG (OS), ONCE
     Route: 031
     Dates: start: 20150513, end: 20150513

REACTIONS (1)
  - Subarachnoid haemorrhage [Fatal]

NARRATIVE: CASE EVENT DATE: 20161208
